FAERS Safety Report 9435521 (Version 1)
Quarter: 2013Q3

REPORT INFORMATION
  Report Type: Spontaneous
  Country: US (occurrence: None)
  Receive Date: 20130730
  Receipt Date: 20130730
  Transmission Date: 20140515
  Serious: Yes (Other)
  Sender: FDA-Public Use
  Company Number: 2013P1013345

PATIENT
  Age: 61 Year
  Sex: Female

DRUGS (5)
  1. FAMOTIDINE [Suspect]
     Indication: URTICARIA
     Dates: start: 20130411
  2. CETIRIZINE HYDROCHLORIDE [Suspect]
     Route: 048
     Dates: start: 20130411
  3. HYDROXYZINE [Suspect]
     Indication: PRURITUS
     Dates: start: 20130411
  4. VENLAFAXINE ER [Suspect]
     Dates: start: 20130204, end: 20130605
  5. MELATONIN [Concomitant]

REACTIONS (2)
  - Urticaria [None]
  - Abasia [None]
